FAERS Safety Report 14491659 (Version 1)
Quarter: 2018Q1

REPORT INFORMATION
  Report Type: Report from Study
  Country: CO (occurrence: CO)
  Receive Date: 20180206
  Receipt Date: 20180206
  Transmission Date: 20180509
  Serious: Yes (Other)
  Sender: FDA-Public Use
  Company Number: CO-EMD SERONO-E2B_90019020

PATIENT
  Age: 14 Year
  Sex: Male

DRUGS (2)
  1. SAIZEN [Suspect]
     Active Substance: SOMATROPIN
     Indication: GROWTH HORMONE DEFICIENCY
     Dates: start: 20170222
  2. SAIZEN [Suspect]
     Active Substance: SOMATROPIN
     Route: 058

REACTIONS (5)
  - Dizziness [Unknown]
  - Haemoglobin increased [Unknown]
  - Myopia [Unknown]
  - Diabetes mellitus [Unknown]
  - Headache [Recovering/Resolving]

NARRATIVE: CASE EVENT DATE: 20180115
